FAERS Safety Report 22818739 (Version 2)
Quarter: 2023Q4

REPORT INFORMATION
  Report Type: Spontaneous
  Country: US (occurrence: US)
  Receive Date: 20230814
  Receipt Date: 20231005
  Transmission Date: 20240109
  Serious: No
  Sender: FDA-Public Use
  Company Number: US-ELI_LILLY_AND_COMPANY-US202308007486

PATIENT
  Age: 60 Year
  Sex: Male

DRUGS (7)
  1. HUMALOG KWIKPEN [Suspect]
     Active Substance: INSULIN LISPRO
     Indication: Type 1 diabetes mellitus
     Dosage: 8 MG, UNKNOWN (SLIDING SCALE)
     Route: 058
     Dates: start: 202208
  2. HUMALOG KWIKPEN [Suspect]
     Active Substance: INSULIN LISPRO
     Indication: Type 1 diabetes mellitus
     Dosage: 8 MG, UNKNOWN (SLIDING SCALE)
     Route: 058
     Dates: start: 202208
  3. HUMALOG KWIKPEN [Suspect]
     Active Substance: INSULIN LISPRO
     Dosage: 8 MG, UNKNOWN (SLIDING SCALE)
     Route: 058
     Dates: start: 202208
  4. HUMALOG KWIKPEN [Suspect]
     Active Substance: INSULIN LISPRO
     Dosage: 8 MG, UNKNOWN (SLIDING SCALE)
     Route: 058
     Dates: start: 202208
  5. LEVEMIR [Concomitant]
     Active Substance: INSULIN DETEMIR
     Indication: Product used for unknown indication
     Dosage: UNK
  6. LANTUS [Concomitant]
     Active Substance: INSULIN GLARGINE
     Indication: Product used for unknown indication
     Dosage: UNK
  7. POTASSIUM CHLORIDE [Concomitant]
     Active Substance: POTASSIUM CHLORIDE
     Indication: Product used for unknown indication
     Dosage: UNK

REACTIONS (8)
  - Pain [Recovered/Resolved]
  - Muscle spasms [Not Recovered/Not Resolved]
  - Blood glucose increased [Recovered/Resolved]
  - Blood test abnormal [Unknown]
  - Feeling abnormal [Not Recovered/Not Resolved]
  - Incorrect product administration duration [Unknown]
  - Fatigue [Not Recovered/Not Resolved]
  - Rash pruritic [Not Recovered/Not Resolved]

NARRATIVE: CASE EVENT DATE: 20230807
